FAERS Safety Report 9473727 (Version 1)
Quarter: 2013Q3

REPORT INFORMATION
  Report Type: Spontaneous
  Country: US (occurrence: US)
  Receive Date: 20130823
  Receipt Date: 20130823
  Transmission Date: 20140515
  Serious: No
  Sender: FDA-Public Use
  Company Number: US-BRISTOL-MYERS SQUIBB COMPANY-16937500

PATIENT
  Age: 48 Year
  Sex: Male
  Weight: 77 kg

DRUGS (7)
  1. SPRYCEL (CML) TABS 50 MG [Suspect]
     Indication: CHRONIC MYELOID LEUKAEMIA
     Dosage: 1DF:50 MG TO 100 MG
     Route: 048
     Dates: start: 20120201, end: 20120221
  2. TACROLIMUS [Concomitant]
  3. FLUCONAZOLE [Concomitant]
  4. ACYCLOVIR [Concomitant]
  5. BACTRIM DS [Concomitant]
  6. OXYCONTIN [Concomitant]
  7. URSODIOL [Concomitant]

REACTIONS (1)
  - Headache [Unknown]
